FAERS Safety Report 7526554-4 (Version None)
Quarter: 2011Q2

REPORT INFORMATION
  Report Type: 
  Country: None (occurrence: None)
  Receive Date: 20110606
  Receipt Date: 20110523
  Transmission Date: 20111010
  Serious: Yes (Hospitalization)
  Sender: FDA-Public Use
  Company Number: US-ELI_LILLY_AND_COMPANY-US201009002053

PATIENT
  Sex: Female
  Weight: 55.42 kg

DRUGS (12)
  1. ZOLOFT [Concomitant]
  2. OXYGEN [Concomitant]
     Dosage: UNK, EACH EVENING
  3. COUMADIN [Concomitant]
  4. SPIRIVA [Concomitant]
  5. FORTEO [Suspect]
     Dosage: 20 UG, DAILY (1/D)
     Route: 058
  6. FORTEO [Suspect]
     Dosage: 20 UG, QD
     Route: 058
  7. FORTEO [Suspect]
     Indication: OSTEOPOROSIS
     Dosage: 20 UG, DAILY (1/D)
     Route: 058
     Dates: start: 20100616, end: 20100818
  8. FORTEO [Suspect]
     Dosage: 20 UG, QD
     Route: 058
  9. CALCIUM CARBONATE [Concomitant]
  10. ANTIBIOTICS [Concomitant]
  11. FORTEO [Suspect]
     Dosage: 20 UG, DAILY (1/D)
     Route: 058
     Dates: start: 20100916, end: 20101215
  12. FORTEO [Suspect]
     Dosage: 20 UG, QD
     Route: 058

REACTIONS (8)
  - BALANCE DISORDER [None]
  - MUSCLE SPASMS [None]
  - CHRONIC OBSTRUCTIVE PULMONARY DISEASE [None]
  - HEARING IMPAIRED [None]
  - DIZZINESS [None]
  - EYE DISORDER [None]
  - URINARY TRACT INFECTION [None]
  - PNEUMONIA [None]
